APPROVED DRUG PRODUCT: VIMPAT
Active Ingredient: LACOSAMIDE
Strength: 200MG/20ML (10MG/ML)
Dosage Form/Route: SOLUTION;INTRAVENOUS
Application: N022254 | Product #001 | TE Code: AP
Applicant: UCB INC
Approved: Oct 28, 2008 | RLD: Yes | RS: Yes | Type: RX

EXCLUSIVITY:
Code: D-188 | Date: Apr 28, 2026